FAERS Safety Report 7083954-7 (Version None)
Quarter: 2010Q4

REPORT INFORMATION
  Report Type: 
  Country: None (occurrence: None)
  Receive Date: 20101104
  Receipt Date: 20100429
  Transmission Date: 20110411
  Serious: No
  Sender: FDA-Public Use
  Company Number: US-ABBOTT-10P-163-0642463-00

PATIENT
  Sex: Male
  Weight: 87.168 kg

DRUGS (2)
  1. KALETRA [Suspect]
     Indication: HIV INFECTION
     Dates: start: 20030301
  2. VIRAMUNE [Concomitant]
     Indication: HIV INFECTION
     Dates: start: 20030301

REACTIONS (2)
  - BLOOD CHOLESTEROL INCREASED [None]
  - DIARRHOEA [None]
